FAERS Safety Report 18429499 (Version 2)
Quarter: 2020Q4

REPORT INFORMATION
  Report Type: Spontaneous
  Country: DE (occurrence: DE)
  Receive Date: 20201027
  Receipt Date: 20201103
  Transmission Date: 20210114
  Serious: No
  Sender: FDA-Public Use
  Company Number: DE-GW PHARMA-202010DEGW03587

PATIENT

DRUGS (2)
  1. EPIDIOLEX [Suspect]
     Active Substance: CANNABIDIOL
     Indication: SEVERE MYOCLONIC EPILEPSY OF INFANCY
     Dosage: UNKNOWN DOSE
     Route: 048
     Dates: end: 2019
  2. EPIDIOLEX [Suspect]
     Active Substance: CANNABIDIOL
     Dosage: UNTIL 5 MG/KG/BW, 375 MILLIGRAM, BID
     Route: 048
     Dates: start: 201910

REACTIONS (1)
  - Therapy responder [Unknown]
